FAERS Safety Report 12422747 (Version 2)
Quarter: 2016Q2

REPORT INFORMATION
  Report Type: Spontaneous
  Country: US (occurrence: US)
  Receive Date: 20160601
  Receipt Date: 20160613
  Transmission Date: 20160815
  Serious: Yes (Hospitalization)
  Sender: FDA-Public Use
  Company Number: US-ALVOGEN-2016-ALVOGEN-024609

PATIENT
  Age: 84 Year
  Sex: Male
  Weight: 60 kg

DRUGS (16)
  1. VORICONAZOLE. [Interacting]
     Active Substance: VORICONAZOLE
     Indication: BRAIN ABSCESS
  2. VORICONAZOLE. [Interacting]
     Active Substance: VORICONAZOLE
     Indication: BRAIN ABSCESS
     Route: 048
  3. VORICONAZOLE. [Interacting]
     Active Substance: VORICONAZOLE
     Indication: BRAIN ABSCESS
     Route: 048
  4. DEXAMETHASONE. [Interacting]
     Active Substance: DEXAMETHASONE
     Indication: BRAIN OEDEMA
     Route: 048
  5. DEXAMETHASONE. [Interacting]
     Active Substance: DEXAMETHASONE
     Indication: BRAIN OEDEMA
     Route: 048
  6. VORICONAZOLE. [Interacting]
     Active Substance: VORICONAZOLE
     Indication: BRAIN ABSCESS
     Route: 042
  7. VORICONAZOLE. [Interacting]
     Active Substance: VORICONAZOLE
     Indication: BRAIN ABSCESS
     Route: 042
  8. DEXAMETHASONE. [Interacting]
     Active Substance: DEXAMETHASONE
     Indication: BRAIN OEDEMA
     Route: 048
  9. VORICONAZOLE. [Suspect]
     Active Substance: VORICONAZOLE
     Indication: BRAIN ABSCESS
  10. VORICONAZOLE. [Interacting]
     Active Substance: VORICONAZOLE
     Indication: BRAIN ABSCESS
  11. CEFEPIME [Concomitant]
     Active Substance: CEFEPIME HYDROCHLORIDE
  12. DEXAMETHASONE. [Interacting]
     Active Substance: DEXAMETHASONE
     Indication: BRAIN OEDEMA
     Route: 048
  13. METRONIDAZOLE. [Concomitant]
     Active Substance: METRONIDAZOLE
  14. DEXAMETHASONE. [Interacting]
     Active Substance: DEXAMETHASONE
     Indication: BRAIN OEDEMA
     Route: 048
  15. VANCOMYCIN [Concomitant]
     Active Substance: VANCOMYCIN
  16. DEXAMETHASONE. [Interacting]
     Active Substance: DEXAMETHASONE
     Indication: BRAIN OEDEMA
     Route: 048

REACTIONS (4)
  - Treatment failure [Unknown]
  - Disease progression [Unknown]
  - Drug level below therapeutic [Recovering/Resolving]
  - Drug interaction [Unknown]
